FAERS Safety Report 17224838 (Version 4)
Quarter: 2020Q2

REPORT INFORMATION
  Report Type: Spontaneous
  Country: HU (occurrence: HU)
  Receive Date: 20200102
  Receipt Date: 20200406
  Transmission Date: 20200713
  Serious: Yes (Other)
  Sender: FDA-Public Use
  Company Number: HU-MYLANLABS-2019M1132015

PATIENT
  Age: 38 Year
  Sex: Female

DRUGS (9)
  1. ALLOPURINOL. [Suspect]
     Active Substance: ALLOPURINOL
     Indication: PRODUCT USED FOR UNKNOWN INDICATION
     Dosage: 300 MG, UNK
     Route: 065
  2. PANTOPRAZOLE [Suspect]
     Active Substance: PANTOPRAZOLE
     Indication: PRODUCT USED FOR UNKNOWN INDICATION
     Dosage: 40 MG, UNK
     Route: 065
  3. CLADRIBINE. [Concomitant]
     Active Substance: CLADRIBINE
     Indication: PRODUCT USED FOR UNKNOWN INDICATION
     Dosage: UNK
     Route: 065
  4. RYDAPT [Suspect]
     Active Substance: MIDOSTAURIN
     Dosage: 50 MG, 2X/DAY (BID)
     Route: 065
  5. FILGRASTIM [Suspect]
     Active Substance: FILGRASTIM
     Indication: PRODUCT USED FOR UNKNOWN INDICATION
     Dosage: UNK
     Route: 065
  6. CYTARABINE. [Suspect]
     Active Substance: CYTARABINE
     Indication: ACUTE MYELOID LEUKAEMIA
     Dosage: UNK
     Route: 065
  7. MITOXANTRONE [Concomitant]
     Active Substance: MITOXANTRONE HYDROCHLORIDE
     Indication: PRODUCT USED FOR UNKNOWN INDICATION
     Dosage: UNK
     Route: 065
  8. ACYCLOVIR                          /00587301/ [Concomitant]
     Active Substance: ACYCLOVIR
     Indication: PRODUCT USED FOR UNKNOWN INDICATION
     Dosage: 400 MG, BID (2 X /DAY)
     Route: 065
  9. RYDAPT [Suspect]
     Active Substance: MIDOSTAURIN
     Indication: ACUTE MYELOID LEUKAEMIA
     Dosage: 50 MG, BID (MAINTAINANCE THERAPY)
     Route: 065
     Dates: start: 201904

REACTIONS (10)
  - Sepsis [Unknown]
  - Myeloblast percentage decreased [Unknown]
  - Pancytopenia [Unknown]
  - Wound secretion [Unknown]
  - Neoplasm progression [Unknown]
  - Megacolon [Unknown]
  - Retinal haemorrhage [Unknown]
  - Acute myeloid leukaemia recurrent [Unknown]
  - Drug ineffective [Unknown]
  - Abdominal wall wound [Unknown]

NARRATIVE: CASE EVENT DATE: 201906
